FAERS Safety Report 9090074 (Version 1)
Quarter: 2013Q1

REPORT INFORMATION
  Report Type: Report from Study
  Country: US (occurrence: US)
  Receive Date: 20130201
  Receipt Date: 20130201
  Transmission Date: 20140127
  Serious: No
  Sender: FDA-Public Use
  Company Number: US-ABBOTT-12P-163-1025694-00

PATIENT
  Age: 53 None
  Sex: Female
  Weight: 55.39 kg

DRUGS (1)
  1. HUMIRA [Suspect]
     Indication: RHEUMATOID ARTHRITIS
     Dates: start: 201210

REACTIONS (13)
  - Injection site pruritus [Recovered/Resolved]
  - Injection site urticaria [Recovering/Resolving]
  - Injection site erythema [Recovered/Resolved]
  - Drug ineffective [Not Recovered/Not Resolved]
  - Pain in extremity [Not Recovered/Not Resolved]
  - Arthralgia [Not Recovered/Not Resolved]
  - Injection site haemorrhage [Not Recovered/Not Resolved]
  - Cough [Not Recovered/Not Resolved]
  - Injection site urticaria [Unknown]
  - Injection site pruritus [Unknown]
  - Rash [Unknown]
  - Device malfunction [Unknown]
  - Incorrect dose administered [Unknown]
